FAERS Safety Report 9187563 (Version 2)
Quarter: 2013Q3

REPORT INFORMATION
  Report Type: Spontaneous
  Country: US (occurrence: US)
  Receive Date: 20130325
  Receipt Date: 20130926
  Transmission Date: 20140515
  Serious: Yes (Hospitalization, Other)
  Sender: FDA-Public Use
  Company Number: US-PFIZER INC-2013093057

PATIENT
  Age: 27 Year
  Sex: Female

DRUGS (2)
  1. CHANTIX [Suspect]
     Dosage: STARTER PACK, UNK
     Dates: start: 20071126
  2. CHANTIX [Suspect]
     Dosage: 1 MG MAINTENANCE PACK, UNK
     Dates: start: 20080102, end: 20080622

REACTIONS (2)
  - Intentional overdose [Unknown]
  - Suicide attempt [Unknown]
